APPROVED DRUG PRODUCT: NAFCILLIN SODIUM
Active Ingredient: NAFCILLIN SODIUM
Strength: EQ 10GM BASE/VIAL
Dosage Form/Route: INJECTABLE;INJECTION
Application: A063008 | Product #001
Applicant: WATSON LABORATORIES INC
Approved: Sep 29, 1988 | RLD: No | RS: No | Type: DISCN